FAERS Safety Report 9147243 (Version 1)
Quarter: 2013Q1

REPORT INFORMATION
  Report Type: Spontaneous
  Country: HU (occurrence: HU)
  Receive Date: 20130307
  Receipt Date: 20130307
  Transmission Date: 20140127
  Serious: Yes (Hospitalization)
  Sender: FDA-Public Use
  Company Number: HU-ABBOTT-13X-076-1057067-00

PATIENT
  Sex: Male

DRUGS (1)
  1. LIPIDIL [Suspect]
     Indication: LIPIDS INCREASED
     Dates: start: 20130102, end: 201302

REACTIONS (2)
  - Pulmonary embolism [Unknown]
  - General physical health deterioration [Unknown]
